FAERS Safety Report 16134814 (Version 2)
Quarter: 2019Q2

REPORT INFORMATION
  Report Type: Report from Study
  Country: CA (occurrence: CA)
  Receive Date: 20190329
  Receipt Date: 20190403
  Transmission Date: 20190711
  Serious: Yes (Death)
  Sender: FDA-Public Use
  Company Number: CA-HLSUS-2019-CA-000344

PATIENT
  Age: 73 Year
  Sex: Female

DRUGS (4)
  1. LATUDA [Concomitant]
     Active Substance: LURASIDONE HYDROCHLORIDE
     Dosage: 120 MG AT DINNER
     Route: 048
  2. RISPERDAL [Concomitant]
     Active Substance: RISPERIDONE
     Dosage: 0.5 MG MORNING AND EVENING
     Route: 048
  3. CLONAZEPAM. [Concomitant]
     Active Substance: CLONAZEPAM
     Dosage: 0.5 MG IN THE MORNING; 1 MG AT BEDTIME
     Route: 048
  4. CLOZARIL [Suspect]
     Active Substance: CLOZAPINE
     Dosage: 50MG AT NOON; 125 MG IN EVENING; AND 50MG AT BEDTIME
     Route: 048
     Dates: start: 20140331, end: 20190317

REACTIONS (1)
  - Death [Fatal]

NARRATIVE: CASE EVENT DATE: 20190317
